FAERS Safety Report 9574856 (Version 2)
Quarter: 2013Q4

REPORT INFORMATION
  Report Type: Spontaneous
  Country: JP (occurrence: JP)
  Receive Date: 20131001
  Receipt Date: 20131001
  Transmission Date: 20140711
  Serious: Yes (Hospitalization)
  Sender: FDA-Public Use
  Company Number: JP-ELI_LILLY_AND_COMPANY-JP201211009311

PATIENT
  Age: 31 Year
  Sex: Female
  Weight: 50 kg

DRUGS (3)
  1. HUMALOG LISPRO - NPL [Suspect]
     Indication: TYPE 1 DIABETES MELLITUS
     Dosage: UNK, BID
     Route: 058
  2. HUMALOG LISPRO - NPL [Suspect]
     Dosage: 10 IU, BID
     Route: 058
  3. NOVORAPID [Concomitant]
     Indication: TYPE 1 DIABETES MELLITUS
     Dosage: UNK, TID
     Route: 058

REACTIONS (2)
  - Blood glucose fluctuation [Recovering/Resolving]
  - Exposure during pregnancy [Recovered/Resolved]
